FAERS Safety Report 18904814 (Version 20)
Quarter: 2023Q1

REPORT INFORMATION
  Report Type: Report from Study
  Country: GB (occurrence: GB)
  Receive Date: 20210217
  Receipt Date: 20230127
  Transmission Date: 20230417
  Serious: Yes (Death, Hospitalization, Other)
  Sender: FDA-Public Use
  Company Number: None

PATIENT
  Age: 76 Year
  Sex: Male
  Weight: 81.1 kg

DRUGS (138)
  1. CARBOPLATIN [Suspect]
     Active Substance: CARBOPLATIN
     Indication: Non-small cell lung cancer
     Route: 065
     Dates: start: 20191216
  2. ETOPOSIDE [Suspect]
     Active Substance: ETOPOSIDE
     Indication: Lung cancer metastatic
  3. PACLITAXEL [Suspect]
     Active Substance: PACLITAXEL
     Indication: Non-small cell lung cancer
     Route: 065
     Dates: start: 20191216
  4. ATEZOLIZUMAB [Suspect]
     Active Substance: ATEZOLIZUMAB
     Indication: Non-small cell lung cancer
     Dosage: SAME DOSE OF ATEZOLIZUMAB INFUSION ON, 10/FEB/2020, 02/MAR/2020, 23/MAR/2020, 14/APR,
     Route: 042
     Dates: start: 20191216
  5. BEVACIZUMAB [Suspect]
     Active Substance: BEVACIZUMAB
     Indication: Non-small cell lung cancer
     Dosage: 1200 MG
     Route: 065
     Dates: start: 20191216
  6. PREDNISOLONE [Concomitant]
     Active Substance: PREDNISOLONE
     Route: 065
     Dates: start: 20200414
  7. SODIUM CHLORIDE [Concomitant]
     Active Substance: SODIUM CHLORIDE
     Indication: Prophylaxis
     Route: 065
     Dates: start: 20200518, end: 20200518
  8. PIPERACILLIN SODIUM\TAZOBACTAM SODIUM [Concomitant]
     Active Substance: PIPERACILLIN SODIUM\TAZOBACTAM SODIUM
     Dosage: UNK EVERY 0.25 DAYS
     Route: 042
     Dates: start: 20200518, end: 20200521
  9. TINZAPARIN [Concomitant]
     Active Substance: TINZAPARIN
     Indication: Prophylaxis
     Route: 065
     Dates: start: 20200518, end: 20200608
  10. BECLOMETHASONE [Concomitant]
     Active Substance: BECLOMETHASONE
     Dosage: UNK EVERY 0.5 DAY
     Route: 065
     Dates: start: 20200520, end: 20200608
  11. BUTYLSCOPOLAMINE BROMIDE [Concomitant]
     Active Substance: BUTYLSCOPOLAMINE BROMIDE
     Indication: Abdominal pain
     Route: 065
     Dates: start: 20200305
  12. CALCIUM\CHOLECALCIFEROL [Concomitant]
     Active Substance: CALCIUM\CHOLECALCIFEROL
     Dosage: AUTHORISATION / APPLICATION NUMBER: PLPI 20636/1121
     Route: 065
     Dates: start: 20200520, end: 20200608
  13. CHOLECALCIFEROL [Concomitant]
     Active Substance: CHOLECALCIFEROL
     Indication: Fatigue
     Route: 065
     Dates: start: 20191213, end: 20200319
  14. AMOXICILLIN\CLAVULANATE POTASSIUM [Concomitant]
     Active Substance: AMOXICILLIN\CLAVULANATE POTASSIUM
     Dosage: EVERY 0.5 DAY
     Route: 048
     Dates: start: 20200518
  15. CODEINE [Concomitant]
     Active Substance: CODEINE
     Indication: Cough
     Route: 065
     Dates: start: 20191001
  16. COTRIMOXAZOLE [Concomitant]
     Active Substance: SULFAMETHOXAZOLE\TRIMETHOPRIM
     Indication: Prophylaxis
     Route: 065
     Dates: start: 20200518, end: 20200520
  17. GLUCOSAMINE [Concomitant]
     Active Substance: GLUCOSAMINE
     Indication: Fatigue
     Dosage: UNK, EVERY 0.5 DAY
     Route: 065
  18. IMODIUM [Concomitant]
     Active Substance: LOPERAMIDE HYDROCHLORIDE
     Indication: Diarrhoea
     Route: 065
     Dates: start: 20200318
  19. POLYETHYLENE GLYCOL 3350\POTASSIUM CHLORIDE\SODIUM BICARBONATE\SODIUM [Concomitant]
     Active Substance: POLYETHYLENE GLYCOL 3350\POTASSIUM CHLORIDE\SODIUM BICARBONATE\SODIUM CHLORIDE
     Indication: Constipation
     Route: 065
     Dates: start: 20190201
  20. METHYLPREDNISOLONE [Concomitant]
     Active Substance: METHYLPREDNISOLONE
     Route: 065
     Dates: start: 20200518, end: 20200518
  21. PANTOPRAZOLE [Concomitant]
     Active Substance: PANTOPRAZOLE
     Indication: Dyspnoea
     Dosage: UNK EVERY 0.5 DAY
     Route: 065
     Dates: start: 20181201
  22. ACETAMINOPHEN [Concomitant]
     Active Substance: ACETAMINOPHEN
     Indication: Abdominal pain
     Dosage: UNK EVERY 0.25 DAY
     Route: 065
     Dates: start: 20200518, end: 20200608
  23. ONDANSETRON [Concomitant]
     Active Substance: ONDANSETRON
     Dates: start: 20191216, end: 20191216
  24. ALFENTANIL [Concomitant]
     Active Substance: ALFENTANIL
     Indication: Product used for unknown indication
     Dates: start: 20200527, end: 20200608
  25. CLARITHROMYCIN [Concomitant]
     Active Substance: CLARITHROMYCIN
     Indication: Product used for unknown indication
     Dates: start: 20200525, end: 20200526
  26. DEXAMETHASONE [Concomitant]
     Active Substance: DEXAMETHASONE
     Dates: start: 20200528, end: 20200531
  27. DEMECLOCYCLINE [Concomitant]
     Active Substance: DEMECLOCYCLINE
     Indication: Product used for unknown indication
     Dates: start: 20200603, end: 20200608
  28. DOCUSATE SODIUM [Concomitant]
     Active Substance: DOCUSATE SODIUM
     Indication: Product used for unknown indication
     Dates: start: 20200526, end: 20200528
  29. FUROSEMIDE [Concomitant]
     Active Substance: FUROSEMIDE
     Indication: Product used for unknown indication
     Dates: start: 20200603, end: 20200603
  30. GLYCERIN [Concomitant]
     Active Substance: GLYCERIN
     Indication: Product used for unknown indication
     Dates: start: 20200529, end: 20200529
  31. GLYCOPYRRONIUM [Concomitant]
     Active Substance: GLYCOPYRRONIUM
     Indication: Prophylaxis
     Dates: start: 20200608, end: 20200609
  32. LIDOCAINE [Concomitant]
     Active Substance: LIDOCAINE
     Indication: Product used for unknown indication
     Dates: start: 20200529, end: 20200607
  33. MAGNESIUM ASPARTATE [Concomitant]
     Active Substance: MAGNESIUM ASPARTATE
     Dates: start: 20200526, end: 20200528
  34. MIDAZOLAM [Concomitant]
     Active Substance: MIDAZOLAM
     Indication: Prophylaxis
     Dates: start: 20200608, end: 20200609
  35. MOXIFLOXACIN [Concomitant]
     Active Substance: MOXIFLOXACIN
     Indication: Product used for unknown indication
     Dates: start: 20200526, end: 20200601
  36. OXYCODONE HYDROCHLORIDE [Concomitant]
     Active Substance: OXYCODONE HYDROCHLORIDE
     Indication: Product used for unknown indication
     Dates: start: 20200525, end: 20200607
  37. RANITIDINE [Concomitant]
     Active Substance: RANITIDINE
     Indication: Prophylaxis
     Dates: start: 20200529, end: 20200608
  38. ALBUTEROL [Concomitant]
     Active Substance: ALBUTEROL
     Indication: Product used for unknown indication
     Dates: start: 20200518, end: 20200518
  39. SENNA [Concomitant]
     Active Substance: SENNA LEAF\SENNOSIDES\SENNOSIDES A AND B
     Indication: Product used for unknown indication
     Dates: start: 20200527, end: 20200607
  40. VORICONAZOLE [Concomitant]
     Active Substance: VORICONAZOLE
     Dates: start: 20200531, end: 20200608
  41. AMLODIPINE [Concomitant]
     Active Substance: AMLODIPINE BESYLATE
     Dosage: TID
  42. BETAMETHASONE [Concomitant]
     Active Substance: BETAMETHASONE
     Indication: Adverse event
     Dosage: TID
     Dates: start: 20220330
  43. CARVEDILOL [Concomitant]
     Active Substance: CARVEDILOL
     Dosage: QD
     Dates: start: 20220119
  44. CHLORPHENIRAMINE MALEATE [Concomitant]
     Active Substance: CHLORPHENIRAMINE MALEATE
     Dates: start: 20220210, end: 20220210
  45. FAMOTIDINE [Concomitant]
     Active Substance: FAMOTIDINE
     Dates: start: 20220512, end: 20220512
  46. HYDROCORTISONE [Concomitant]
     Active Substance: HYDROCORTISONE
     Indication: Adverse event
     Dosage: AS NECESSARY
     Dates: start: 20220120, end: 20220120
  47. LEVOTHYROXINE [Concomitant]
     Active Substance: LEVOTHYROXINE
     Dosage: QD
     Dates: start: 20220330
  48. LORATADINE [Concomitant]
     Active Substance: LORATADINE
  49. METFORMIN [Concomitant]
     Active Substance: METFORMIN HYDROCHLORIDE
  50. OMEPRAZOLE [Concomitant]
     Active Substance: OMEPRAZOLE
     Indication: Adverse event
     Dates: start: 20220119
  51. PERINDOPRIL [Concomitant]
     Active Substance: PERINDOPRIL
  52. MAGNESIUM SULFATE [Concomitant]
     Active Substance: MAGNESIUM SULFATE
     Dates: start: 20200518, end: 20200519
  53. BENDROFLUMETHIAZIDE [Concomitant]
     Active Substance: BENDROFLUMETHIAZIDE
  54. CALCIUM CARBONATE [Concomitant]
     Active Substance: CALCIUM CARBONATE
     Dosage: QD
     Dates: start: 20200520, end: 20220608
  55. FOLIC ACID [Concomitant]
     Active Substance: FOLIC ACID
     Dosage: QD
     Dates: start: 20200520, end: 20200608
  56. LISINOPRIL [Concomitant]
     Active Substance: LISINOPRIL
  57. MAGNESIUM OXIDE [Concomitant]
     Active Substance: MAGNESIUM OXIDE
     Dosage: QD
     Dates: start: 20200520, end: 20200608
  58. PYRIDOXINE HYDROCHLORIDE [Concomitant]
     Active Substance: PYRIDOXINE HYDROCHLORIDE
     Dosage: QD
     Dates: start: 20200520, end: 20200608
  59. SODIUM BORATE [Concomitant]
     Active Substance: SODIUM BORATE
     Dosage: QD
     Dates: start: 20200520, end: 20200608
  60. ZOPICLONE [Concomitant]
     Active Substance: ZOPICLONE
  61. ACETAMINOPHEN [Concomitant]
     Active Substance: ACETAMINOPHEN
     Indication: Headache
     Route: 065
     Dates: start: 20200319, end: 20200528
  62. PREDNISOLONE [Concomitant]
     Active Substance: PREDNISOLONE
     Route: 065
     Dates: start: 20200518, end: 20200528
  63. PREDNISOLONE [Concomitant]
     Active Substance: PREDNISOLONE
     Indication: Dyspnoea
     Route: 065
     Dates: start: 20190701
  64. ATEZOLIZUMAB [Suspect]
     Active Substance: ATEZOLIZUMAB
     Indication: Non-small cell lung cancer
     Dosage: INTRAVENOUS DRIP
     Route: 042
     Dates: start: 20191216, end: 20200414
  65. ATEZOLIZUMAB [Suspect]
     Active Substance: ATEZOLIZUMAB
     Indication: Product used for unknown indication
     Dosage: INTRAVENOUS DRIP
     Route: 042
     Dates: start: 20211224
  66. BEVACIZUMAB [Suspect]
     Active Substance: BEVACIZUMAB
     Indication: Non-small cell lung cancer
     Dates: start: 20211224
  67. ACETAMINOPHEN [Concomitant]
     Active Substance: ACETAMINOPHEN
     Route: 065
     Dates: start: 20220331, end: 20220331
  68. BECLOMETHASONE [Concomitant]
     Active Substance: BECLOMETHASONE
     Dosage: 0.5 DOSAGE FORM, 0.5 DAY
     Route: 065
     Dates: start: 20191101
  69. CODEINE [Concomitant]
     Active Substance: CODEINE
     Indication: Cough
     Route: 065
     Dates: start: 20200526, end: 20200529
  70. CODEINE [Concomitant]
     Active Substance: CODEINE
     Indication: Product used for unknown indication
     Route: 065
     Dates: start: 20200607, end: 20200607
  71. COTRIMOXAZOLE [Concomitant]
     Active Substance: SULFAMETHOXAZOLE\TRIMETHOPRIM
     Indication: Prophylaxis
     Dosage: 0.33 DAY
     Route: 065
     Dates: start: 20200521, end: 20200605
  72. DEXAMETHASONE [Concomitant]
     Active Substance: DEXAMETHASONE
     Dates: start: 20200601, end: 20200603
  73. POLYETHYLENE GLYCOL 3350\POTASSIUM CHLORIDE\SODIUM BICARBONATE\SODIUM [Concomitant]
     Active Substance: POLYETHYLENE GLYCOL 3350\POTASSIUM CHLORIDE\SODIUM BICARBONATE\SODIUM CHLORIDE
     Indication: Constipation
     Dates: start: 20200529, end: 20200608
  74. POLYETHYLENE GLYCOL 3350\POTASSIUM CHLORIDE\SODIUM BICARBONATE\SODIUM [Concomitant]
     Active Substance: POLYETHYLENE GLYCOL 3350\POTASSIUM CHLORIDE\SODIUM BICARBONATE\SODIUM CHLORIDE
     Indication: Product used for unknown indication
     Dates: start: 20200528, end: 20200528
  75. MAGNESIUM ASPARTATE [Concomitant]
     Active Substance: MAGNESIUM ASPARTATE
     Dates: start: 20200603, end: 20200605
  76. MAGNESIUM ASPARTATE [Concomitant]
     Active Substance: MAGNESIUM ASPARTATE
     Dates: start: 20200518, end: 20200519
  77. SODIUM CHLORIDE [Concomitant]
     Active Substance: SODIUM CHLORIDE
     Indication: Product used for unknown indication
     Dates: start: 20200527, end: 20200601
  78. SODIUM CHLORIDE [Concomitant]
     Active Substance: SODIUM CHLORIDE
     Indication: Prophylaxis
     Dates: start: 20220518, end: 20220518
  79. PIPERACILLIN SODIUM\TAZOBACTAM SODIUM [Concomitant]
     Active Substance: PIPERACILLIN SODIUM\TAZOBACTAM SODIUM
     Dosage: UNK EVERY 0.25 DAYS
     Dates: start: 20200607, end: 20200608
  80. VORICONAZOLE [Concomitant]
     Active Substance: VORICONAZOLE
     Dates: start: 20200529, end: 20200530
  81. SODIUM CHLORIDE [Concomitant]
     Active Substance: SODIUM CHLORIDE
     Indication: Prophylaxis
     Route: 065
     Dates: start: 20200526, end: 20200607
  82. CARVEDILOL [Concomitant]
     Active Substance: CARVEDILOL
     Indication: Gastrooesophageal variceal haemorrhage prophylaxis
     Dosage: QD
     Dates: start: 202112, end: 20220119
  83. CHLORPHENIRAMINE MALEATE [Concomitant]
     Active Substance: CHLORPHENIRAMINE MALEATE
     Indication: Adverse event
     Dates: start: 20220120, end: 20220120
  84. CHLORPHENIRAMINE MALEATE [Concomitant]
     Active Substance: CHLORPHENIRAMINE MALEATE
     Dates: start: 20220421, end: 20220421
  85. CHLORPHENIRAMINE MALEATE [Concomitant]
     Active Substance: CHLORPHENIRAMINE MALEATE
     Dates: start: 20220602, end: 20220602
  86. CHLORPHENIRAMINE MALEATE [Concomitant]
     Active Substance: CHLORPHENIRAMINE MALEATE
     Dates: start: 20220331, end: 20220331
  87. CHLORPHENIRAMINE MALEATE [Concomitant]
     Active Substance: CHLORPHENIRAMINE MALEATE
     Dates: start: 20220120, end: 20220120
  88. CHLORPHENIRAMINE MALEATE [Concomitant]
     Active Substance: CHLORPHENIRAMINE MALEATE
     Dates: start: 20220310, end: 20220310
  89. CHLORPHENIRAMINE MALEATE [Concomitant]
     Active Substance: CHLORPHENIRAMINE MALEATE
     Dates: start: 20220623, end: 20220623
  90. CHLORPHENIRAMINE MALEATE [Concomitant]
     Active Substance: CHLORPHENIRAMINE MALEATE
     Indication: Adverse event
     Dates: start: 20220210, end: 20220210
  91. CHLORPHENIRAMINE MALEATE [Concomitant]
     Active Substance: CHLORPHENIRAMINE MALEATE
     Dates: start: 20220512, end: 20220512
  92. CHLORPHENIRAMINE MALEATE [Concomitant]
     Active Substance: CHLORPHENIRAMINE MALEATE
     Dosage: 10 MILLIGRAM, AS NECESSARY
     Dates: start: 20220421, end: 20220421
  93. CHOLECALCIFEROL [Concomitant]
     Active Substance: CHOLECALCIFEROL
     Indication: Fatigue
     Dosage: QD
     Route: 065
     Dates: start: 20220302
  94. AMOXICILLIN\CLAVULANATE POTASSIUM [Concomitant]
     Active Substance: AMOXICILLIN\CLAVULANATE POTASSIUM
     Dosage: TID
     Route: 048
     Dates: start: 20200527
  95. FAMOTIDINE [Concomitant]
     Active Substance: FAMOTIDINE
     Dates: start: 20220602, end: 20220602
  96. FAMOTIDINE [Concomitant]
     Active Substance: FAMOTIDINE
     Dates: start: 20220310, end: 20220310
  97. FAMOTIDINE [Concomitant]
     Active Substance: FAMOTIDINE
     Dates: start: 20220210, end: 20220210
  98. FAMOTIDINE [Concomitant]
     Active Substance: FAMOTIDINE
     Dates: start: 20220623, end: 20220623
  99. FAMOTIDINE [Concomitant]
     Active Substance: FAMOTIDINE
     Dates: start: 20220512, end: 20220512
  100. HYDROCORTISONE [Concomitant]
     Active Substance: HYDROCORTISONE
     Dates: start: 20220623, end: 20220623
  101. HYDROCORTISONE [Concomitant]
     Active Substance: HYDROCORTISONE
     Dates: start: 20220512, end: 20220512
  102. HYDROCORTISONE [Concomitant]
     Active Substance: HYDROCORTISONE
     Dates: start: 20220421, end: 20220421
  103. HYDROCORTISONE [Concomitant]
     Active Substance: HYDROCORTISONE
     Dates: start: 20220210, end: 20220210
  104. HYDROCORTISONE [Concomitant]
     Active Substance: HYDROCORTISONE
     Dates: start: 20220331, end: 20220331
  105. HYDROCORTISONE [Concomitant]
     Active Substance: HYDROCORTISONE
     Dates: start: 20220310, end: 20220310
  106. HYDROCORTISONE [Concomitant]
     Active Substance: HYDROCORTISONE
     Dates: start: 202203, end: 20220330
  107. HYDROCORTISONE [Concomitant]
     Active Substance: HYDROCORTISONE
     Dates: start: 20220602, end: 20220602
  108. LIDOCAINE [Concomitant]
     Active Substance: LIDOCAINE
     Indication: Product used for unknown indication
     Dosage: QD
     Dates: start: 20200519
  109. ONDANSETRON [Concomitant]
     Active Substance: ONDANSETRON
     Dates: start: 20220623, end: 20220623
  110. ONDANSETRON [Concomitant]
     Active Substance: ONDANSETRON
     Dates: start: 20220421, end: 20220421
  111. ONDANSETRON [Concomitant]
     Active Substance: ONDANSETRON
     Dosage: AS NECESSARY
     Dates: start: 20220120, end: 20220120
  112. ONDANSETRON [Concomitant]
     Active Substance: ONDANSETRON
     Dates: start: 20220331, end: 20220331
  113. ACETAMINOPHEN [Concomitant]
     Active Substance: ACETAMINOPHEN
     Indication: Abdominal pain
     Dates: start: 20220210, end: 20220210
  114. ACETAMINOPHEN [Concomitant]
     Active Substance: ACETAMINOPHEN
     Route: 065
     Dates: start: 20220602, end: 20220602
  115. ACETAMINOPHEN [Concomitant]
     Active Substance: ACETAMINOPHEN
     Dosage: AS NECESSARY
     Dates: start: 20220120, end: 20220120
  116. ACETAMINOPHEN [Concomitant]
     Active Substance: ACETAMINOPHEN
     Dates: start: 20220421, end: 20220421
  117. ACETAMINOPHEN [Concomitant]
     Active Substance: ACETAMINOPHEN
     Dates: start: 20220623, end: 20220623
  118. ACETAMINOPHEN [Concomitant]
     Active Substance: ACETAMINOPHEN
     Dates: start: 20220512, end: 20220512
  119. BEVACIZUMAB [Suspect]
     Active Substance: BEVACIZUMAB
     Indication: Hepatocellular carcinoma
     Route: 065
     Dates: start: 20191116
  120. CHLORPHENIRAMINE MALEATE [Concomitant]
     Active Substance: CHLORPHENIRAMINE MALEATE
     Dates: start: 20220804, end: 20220804
  121. CHLORPHENIRAMINE MALEATE [Concomitant]
     Active Substance: CHLORPHENIRAMINE MALEATE
     Dates: start: 20220302, end: 20220302
  122. CHLORPHENIRAMINE MALEATE [Concomitant]
     Active Substance: CHLORPHENIRAMINE MALEATE
     Dates: start: 20220825, end: 20220825
  123. CHLORPHENIRAMINE MALEATE [Concomitant]
     Active Substance: CHLORPHENIRAMINE MALEATE
     Dates: start: 20220915, end: 20220915
  124. CHLORPHENIRAMINE MALEATE [Concomitant]
     Active Substance: CHLORPHENIRAMINE MALEATE
     Dates: start: 20220714, end: 20220714
  125. CHLORPHENIRAMINE MALEATE [Concomitant]
     Active Substance: CHLORPHENIRAMINE MALEATE
     Dates: start: 20221006, end: 20221006
  126. CHOLECALCIFEROL [Concomitant]
     Active Substance: CHOLECALCIFEROL
     Dosage: QD
     Route: 065
     Dates: start: 20200520, end: 20200608
  127. COTRIMOXAZOLE [Concomitant]
     Active Substance: SULFAMETHOXAZOLE\TRIMETHOPRIM
     Indication: Prophylaxis
     Dosage: 0.33 DOSAGE FORM, QD
     Route: 065
     Dates: start: 20200527
  128. FAMOTIDINE [Concomitant]
     Active Substance: FAMOTIDINE
     Dates: start: 20220714, end: 20220714
  129. FAMOTIDINE [Concomitant]
     Active Substance: FAMOTIDINE
     Dates: start: 20220915, end: 20220915
  130. FAMOTIDINE [Concomitant]
     Active Substance: FAMOTIDINE
     Dates: start: 20220825, end: 20220825
  131. FAMOTIDINE [Concomitant]
     Active Substance: FAMOTIDINE
     Dates: start: 20221006, end: 20221006
  132. FAMOTIDINE [Concomitant]
     Active Substance: FAMOTIDINE
     Dates: start: 20220804, end: 20220804
  133. GLUCOSAMINE [Concomitant]
     Active Substance: GLUCOSAMINE
     Indication: Fatigue
     Dosage: 0.5 DOSAGE FORM, QD
     Route: 065
     Dates: start: 20200319
  134. PREDNISOLONE [Concomitant]
     Active Substance: PREDNISOLONE
     Dosage: QD
     Dates: start: 20200519, end: 20200528
  135. HYDROCORTISONE [Concomitant]
     Active Substance: HYDROCORTISONE
     Dates: start: 20221027, end: 20221027
  136. METHYLPREDNISOLONE [Concomitant]
     Active Substance: METHYLPREDNISOLONE
     Route: 065
     Dates: start: 20200519
  137. PANTOPRAZOLE [Concomitant]
     Active Substance: PANTOPRAZOLE
     Dosage: UNK, DAILY
     Route: 065
     Dates: start: 20200519, end: 20200528
  138. ACETAMINOPHEN [Concomitant]
     Active Substance: ACETAMINOPHEN
     Indication: Chest pain
     Route: 065
     Dates: start: 20200414

REACTIONS (26)
  - Pyrexia [Recovered/Resolved]
  - Dysuria [Recovered/Resolved]
  - Diarrhoea [Recovered/Resolved]
  - Decubitus ulcer [Not Recovered/Not Resolved]
  - Abdominal pain [Recovered/Resolved]
  - Neuropathy peripheral [Recovered/Resolved]
  - Stomatitis [Recovered/Resolved]
  - Hypomagnesaemia [Recovered/Resolved]
  - Fatigue [Recovering/Resolving]
  - Hypothyroidism [Recovering/Resolving]
  - Dysphonia [Recovered/Resolved]
  - Abdominal pain upper [Recovered/Resolved]
  - Blood creatinine increased [Recovered/Resolved]
  - Infusion related reaction [Recovered/Resolved]
  - Rash maculo-papular [Recovering/Resolving]
  - Lower respiratory tract infection [Recovered/Resolved]
  - Pneumonia [Not Recovered/Not Resolved]
  - Constipation [Recovered/Resolved]
  - Lung adenocarcinoma [Fatal]
  - Oedema peripheral [Not Recovered/Not Resolved]
  - Chest pain [Not Recovered/Not Resolved]
  - Hyponatraemia [Not Recovered/Not Resolved]
  - Urinary tract infection [Recovered/Resolved]
  - Blood bilirubin increased [Recovering/Resolving]
  - Epistaxis [Recovered/Resolved]
  - Pruritus [Recovered/Resolved]

NARRATIVE: CASE EVENT DATE: 20191216
